FAERS Safety Report 5036196-0 (Version None)
Quarter: 2006Q2

REPORT INFORMATION
  Report Type: 
  Country: None (occurrence: None)
  Receive Date: 20060531
  Receipt Date: 20060323
  Transmission Date: 20061013
  Serious: Yes (Other)
  Sender: FDA-Public Use
  Company Number: 2006032963

PATIENT
  Sex: Female

DRUGS (7)
  1. COLESTIPOL HYDROCHLORIDE [Suspect]
     Indication: BLOOD CHOLESTEROL INCREASED
     Dosage: 4 MG (2 MG, 2 IN 1 D), ORAL
     Route: 048
     Dates: start: 20060303, end: 20060303
  2. CALCIUM PLUS (CALCIUM PLUS) [Concomitant]
  3. VITAMIN E [Concomitant]
  4. ZYRTEC [Concomitant]
  5. ATENOLOL [Concomitant]
  6. INDAPAMIDE [Concomitant]
  7. VITAMINS (VITAMINS) [Concomitant]

REACTIONS (7)
  - CHOKING [None]
  - DYSPHAGIA [None]
  - INTENTIONAL DRUG MISUSE [None]
  - LACRIMATION INCREASED [None]
  - MUSCULOSKELETAL DISCOMFORT [None]
  - OBSTRUCTIVE AIRWAYS DISORDER [None]
  - UNEVALUABLE EVENT [None]
